FAERS Safety Report 5135477-X (Version None)
Quarter: 2006Q4

REPORT INFORMATION
  Report Type: 
  Country: None (occurrence: None)
  Receive Date: 20061026
  Receipt Date: 20060912
  Transmission Date: 20070319
  Serious: Yes (Other)
  Sender: FDA-Public Use
  Company Number: US-AMGEN-US193330

PATIENT
  Sex: Male
  Weight: 86.7 kg

DRUGS (7)
  1. ARANESP [Suspect]
     Indication: ANAEMIA OF MALIGNANT DISEASE
     Route: 058
     Dates: start: 20060727, end: 20060908
  2. RITUXIMAB [Suspect]
     Dates: start: 20060502, end: 20060727
  3. BACTRIM DS [Suspect]
     Dates: start: 20060502, end: 20060908
  4. CYCLOPHOSPHAMIDE [Concomitant]
     Dates: start: 20060411, end: 20060729
  5. ACYCLOVIR [Concomitant]
     Dates: start: 20060316, end: 20060908
  6. ALLOPURINOL [Concomitant]
     Dates: start: 20060316, end: 20060727
  7. NEURONTIN [Concomitant]
     Dates: start: 20050519, end: 20060908

REACTIONS (9)
  - ANAEMIA [None]
  - APLASIA PURE RED CELL [None]
  - BLOOD PRODUCT TRANSFUSION DEPENDENT [None]
  - BONE MARROW FAILURE [None]
  - CHRONIC LYMPHOCYTIC LEUKAEMIA [None]
  - DISEASE PROGRESSION [None]
  - RETICULOCYTOPENIA [None]
  - SERUM FERRITIN INCREASED [None]
  - THROMBOCYTOPENIA [None]
